FAERS Safety Report 4793817-5 (Version None)
Quarter: 2005Q4

REPORT INFORMATION
  Report Type: 
  Country: None (occurrence: None)
  Receive Date: 20051006
  Receipt Date: 20050926
  Transmission Date: 20060501
  Serious: Yes (Disabling, Other)
  Sender: FDA-Public Use
  Company Number: 2003151917US

PATIENT
  Age: 83 Year
  Sex: Male
  Weight: 78 kg

DRUGS (5)
  1. XALATAN [Suspect]
     Dosage: SEE IMAGE
     Route: 047
     Dates: start: 20020101, end: 20020101
  2. XALATAN [Suspect]
     Dosage: SEE IMAGE
     Route: 047
     Dates: start: 20030204, end: 20030208
  3. COSOPT [Concomitant]
  4. FOLIC ACID [Concomitant]
  5. ASPIRINA INFANTIL                     (ACETYLSALICYLIC ACID) [Concomitant]

REACTIONS (5)
  - BLINDNESS UNILATERAL [None]
  - CATARACT [None]
  - CONDITION AGGRAVATED [None]
  - RETINAL OEDEMA [None]
  - RETINAL VASCULAR OCCLUSION [None]
